FAERS Safety Report 23325533 (Version 1)
Quarter: 2023Q4

REPORT INFORMATION
  Report Type: Other
  Country: CA (occurrence: CA)
  Receive Date: 20231221
  Receipt Date: 20231221
  Transmission Date: 20240109
  Serious: Yes (Other)
  Sender: FDA-Public Use
  Company Number: CA-APOTEX-2023AP018030

PATIENT
  Age: 86 Year
  Sex: Male

DRUGS (1)
  1. CYCLOBENZAPRINE [Suspect]
     Active Substance: CYCLOBENZAPRINE
     Indication: Muscle relaxant therapy
     Dosage: 10 MILLIGRAM, TID
     Route: 065

REACTIONS (1)
  - Hallucination, visual [Recovered/Resolved]
